FAERS Safety Report 7354483-8 (Version None)
Quarter: 2011Q1

REPORT INFORMATION
  Report Type: 
  Country: None (occurrence: None)
  Receive Date: 20110316
  Receipt Date: 20110307
  Transmission Date: 20110831
  Serious: Yes (Other)
  Sender: FDA-Public Use
  Company Number: CR-BAYER-2011-019881

PATIENT
  Age: 20 Year
  Weight: 82 kg

DRUGS (1)
  1. YASMIN [Suspect]
     Indication: PRODUCT USED FOR UNKNOWN INDICATION
     Dosage: UNK
     Route: 048
     Dates: start: 20100901

REACTIONS (3)
  - RHINORRHOEA [None]
  - ARTHRALGIA [None]
  - VENA CAVA THROMBOSIS [None]
